FAERS Safety Report 4368700-X (Version None)
Quarter: 2004Q2

REPORT INFORMATION
  Report Type: 
  Country: None (occurrence: None)
  Receive Date: 20040525
  Receipt Date: 20040518
  Transmission Date: 20050107
  Serious: Yes (Other)
  Sender: FDA-Public Use
  Company Number: 2004213932GB

PATIENT

DRUGS (6)
  1. SOLU-MEDROL [Suspect]
     Dosage: IV
     Route: 042
     Dates: start: 20000601, end: 20040201
  2. SOLU-MEDROL [Suspect]
  3. SOLU-MEDROL [Suspect]
  4. SOLU-MEDROL [Suspect]
  5. SOLU-MEDROL [Suspect]
  6. SOLU-MEDROL [Suspect]

REACTIONS (1)
  - HEPATITIS [None]
